FAERS Safety Report 9416869 (Version 1)
Quarter: 2013Q3

REPORT INFORMATION
  Report Type: Spontaneous
  Country: US (occurrence: US)
  Receive Date: 20130724
  Receipt Date: 20130724
  Transmission Date: 20140515
  Serious: Yes (Other)
  Sender: FDA-Public Use
  Company Number: US-JNJFOC-20130708373

PATIENT
  Age: 33 Year
  Sex: Female
  Weight: 90.72 kg

DRUGS (1)
  1. ELMIRON [Suspect]
     Indication: CYSTITIS INTERSTITIAL
     Route: 048
     Dates: start: 2005

REACTIONS (1)
  - Coeliac disease [Not Recovered/Not Resolved]
